FAERS Safety Report 20173476 (Version 2)
Quarter: 2021Q4

REPORT INFORMATION
  Report Type: Spontaneous
  Country: US (occurrence: US)
  Receive Date: 20211212
  Receipt Date: 20211229
  Transmission Date: 20220303
  Serious: Yes (Hospitalization)
  Sender: FDA-Public Use
  Company Number: US-JNJFOC-20211164663

PATIENT
  Age: 93 Year
  Sex: Female

DRUGS (1)
  1. XARELTO [Suspect]
     Active Substance: RIVAROXABAN
     Indication: Thrombosis
     Route: 048
     Dates: start: 201905, end: 20211130

REACTIONS (5)
  - Internal haemorrhage [Recovering/Resolving]
  - Product dose omission issue [Unknown]
  - Anaemia [Unknown]
  - Blood pressure decreased [Unknown]
  - Iron deficiency [Unknown]

NARRATIVE: CASE EVENT DATE: 20211128
